FAERS Safety Report 6702963-8 (Version None)
Quarter: 2010Q2

REPORT INFORMATION
  Report Type: 
  Country: None (occurrence: None)
  Receive Date: 20100429
  Receipt Date: 20100429
  Transmission Date: 20101027
  Serious: Yes (Hospitalization)
  Sender: FDA-Public Use
  Company Number: None

PATIENT
  Sex: Male
  Weight: 28.7 kg

DRUGS (3)
  1. CYTARABINE [Suspect]
     Dosage: 6300 MG
     Dates: end: 20100322
  2. MITOXANTRONE HYDROCHLORIDE [Suspect]
     Dosage: 20 MG
     Dates: end: 20100323
  3. TRETINOIN [Suspect]
     Dosage: 420 MG
     Dates: end: 20100402

REACTIONS (2)
  - NEUTROPENIA [None]
  - PYREXIA [None]
